FAERS Safety Report 4565301-5 (Version None)
Quarter: 2005Q1

REPORT INFORMATION
  Report Type: 
  Country: None (occurrence: None)
  Receive Date: 20050131
  Receipt Date: 20050121
  Transmission Date: 20050727
  Serious: Yes (Hospitalization)
  Sender: FDA-Public Use
  Company Number: US-MERCK-0501USA03371

PATIENT
  Age: 75 Year
  Sex: Female

DRUGS (7)
  1. COZAAR [Suspect]
     Route: 048
  2. FUROSEMIDE [Concomitant]
     Route: 065
  3. METOPROLOL [Concomitant]
     Route: 065
  4. DOCUSATE SODIUM [Concomitant]
     Route: 065
  5. AMIODARONE [Concomitant]
     Route: 065
  6. WARFARIN [Concomitant]
     Route: 065
  7. GLIPIZIDE [Concomitant]
     Route: 065

REACTIONS (2)
  - COLONIC PSEUDO-OBSTRUCTION [None]
  - INTERNATIONAL NORMALISED RATIO ABNORMAL [None]
